FAERS Safety Report 11192546 (Version 4)
Quarter: 2015Q3

REPORT INFORMATION
  Report Type: Spontaneous
  Country: US (occurrence: US)
  Receive Date: 20150616
  Receipt Date: 20150716
  Transmission Date: 20151125
  Serious: Yes (Hospitalization)
  Sender: FDA-Public Use
  Company Number: US-PFIZER INC-2015198772

PATIENT
  Sex: Male

DRUGS (4)
  1. FLUCONAZOLE. [Interacting]
     Active Substance: FLUCONAZOLE
     Indication: BLOOD CHOLESTEROL ABNORMAL
  2. FLUCONAZOLE. [Interacting]
     Active Substance: FLUCONAZOLE
     Indication: BLOOD GLUCOSE ABNORMAL
  3. TIKOSYN [Interacting]
     Active Substance: DOFETILIDE
     Indication: CARDIAC DISORDER
     Dosage: UNK
     Dates: start: 20150504
  4. FLUCONAZOLE. [Suspect]
     Active Substance: FLUCONAZOLE
     Indication: PROSTATIC DISORDER
     Dosage: UNK
     Dates: start: 20150508, end: 20150522

REACTIONS (10)
  - Headache [Recovered/Resolved]
  - Product use issue [Unknown]
  - Drug interaction [Not Recovered/Not Resolved]
  - Somnolence [Unknown]
  - Asthenia [Unknown]
  - Cough [Recovering/Resolving]
  - Influenza [Not Recovered/Not Resolved]
  - Condition aggravated [Not Recovered/Not Resolved]
  - Weight decreased [Unknown]
  - Fatigue [Unknown]
